FAERS Safety Report 23040903 (Version 3)
Quarter: 2025Q3

REPORT INFORMATION
  Report Type: Spontaneous
  Country: US (occurrence: US)
  Receive Date: 20231006
  Receipt Date: 20250711
  Transmission Date: 20251021
  Serious: No
  Sender: SANOFI AVENTIS
  Company Number: US-SA-SAC20231003000685

PATIENT
  Age: 24 Year
  Sex: Male
  Weight: 83 kg

DRUGS (2)
  1. DUPIXENT [Suspect]
     Active Substance: DUPILUMAB
     Indication: Dermatitis atopic
     Dosage: 300 MG, QOW
     Route: 058
     Dates: end: 20230806
  2. DUPIXENT [Suspect]
     Active Substance: DUPILUMAB
     Dosage: 300 MG, QOW
     Route: 058

REACTIONS (8)
  - Lacrimation increased [Unknown]
  - Eye discharge [Unknown]
  - Eczema [Unknown]
  - Product dose omission issue [Unknown]
  - Conjunctivitis [Unknown]
  - Therapeutic response shortened [Unknown]
  - Ocular hyperaemia [Unknown]
  - Dry skin [Unknown]

NARRATIVE: CASE EVENT DATE: 20230901
